FAERS Safety Report 13705567 (Version 3)
Quarter: 2023Q2

REPORT INFORMATION
  Report Type: Spontaneous
  Country: US (occurrence: US)
  Receive Date: 20170630
  Receipt Date: 20230516
  Transmission Date: 20230721
  Serious: Yes (Death, Other)
  Sender: FDA-Public Use
  Company Number: US-MLMSERVICE-20170622-0780413-1

PATIENT
  Age: 58 Year
  Sex: Male

DRUGS (3)
  1. TACROLIMUS [Suspect]
     Active Substance: TACROLIMUS
     Indication: Renal transplant
     Dosage: UNK UNK, UNKNOWN FREQ.
     Route: 065
  2. MYCOPHENOLIC ACID [Suspect]
     Active Substance: MYCOPHENOLIC ACID
     Indication: Renal transplant
     Dosage: UNK, UNKNOWN FREQ.
     Route: 065
  3. ALEMTUZUMAB [Suspect]
     Active Substance: ALEMTUZUMAB
     Indication: Renal transplant
     Dosage: UNK, UNKNOWN FREQ.
     Route: 065

REACTIONS (9)
  - Disseminated cryptococcosis [Fatal]
  - Pulseless electrical activity [Fatal]
  - Splenic rupture [Fatal]
  - Haemorrhagic infarction [Fatal]
  - Pneumonia cryptococcal [Fatal]
  - Hepatic necrosis [Fatal]
  - Myocarditis infectious [Fatal]
  - Hypotension [Unknown]
  - Haemoglobin decreased [Unknown]
